FAERS Safety Report 18565953 (Version 2)
Quarter: 2021Q1

REPORT INFORMATION
  Report Type: Spontaneous
  Country: US (occurrence: US)
  Receive Date: 20201201
  Receipt Date: 20210118
  Transmission Date: 20210419
  Serious: Yes (Death, Hospitalization, Other)
  Sender: FDA-Public Use
  Company Number: US-TEVA-2020-US-1853615

PATIENT
  Age: 36 Year
  Sex: Male

DRUGS (15)
  1. AMPHOTERICIN?B [Concomitant]
     Active Substance: AMPHOTERICIN B
     Indication: MENINGITIS FUNGAL
  2. DEXAMETHASONE. [Suspect]
     Active Substance: DEXAMETHASONE
     Dosage: 12 MILLIGRAM DAILY;
     Route: 042
  3. LIPOSOMAL AMPHOTERICIN?B [Concomitant]
     Active Substance: AMPHOTERICIN B
     Indication: MENINGITIS FUNGAL
  4. AMPHOTERICIN?B [Concomitant]
     Active Substance: AMPHOTERICIN B
     Indication: COCCIDIOIDOMYCOSIS
     Route: 065
  5. CLONIDINE. [Suspect]
     Active Substance: CLONIDINE
     Indication: HYPERTENSION
     Route: 065
  6. LIPOSOMAL AMPHOTERICIN?B [Concomitant]
     Active Substance: AMPHOTERICIN B
     Indication: COCCIDIOIDOMYCOSIS
     Dosage: 5 MG/KG DAILY;
     Route: 042
  7. VORICONAZOLE. [Suspect]
     Active Substance: VORICONAZOLE
     Indication: COCCIDIOIDOMYCOSIS
     Dosage: 800 MILLIGRAM DAILY;
     Route: 048
  8. POSACONAZOLE [Suspect]
     Active Substance: POSACONAZOLE
     Indication: MENINGITIS FUNGAL
  9. DEXAMETHASONE. [Suspect]
     Active Substance: DEXAMETHASONE
     Indication: COCCIDIOIDOMYCOSIS
     Dosage: 16 MILLIGRAM DAILY;
     Route: 048
  10. POSACONAZOLE [Suspect]
     Active Substance: POSACONAZOLE
     Indication: COCCIDIOIDOMYCOSIS
     Dosage: 300 MILLIGRAM DAILY;
     Route: 042
  11. FLUCONAZOLE. [Suspect]
     Active Substance: FLUCONAZOLE
     Indication: COCCIDIOIDOMYCOSIS
     Dosage: 800 MILLIGRAM DAILY;
     Route: 048
  12. FLUCONAZOLE. [Suspect]
     Active Substance: FLUCONAZOLE
     Indication: MENINGITIS FUNGAL
     Dosage: 1200 MILLIGRAM DAILY;
     Route: 048
  13. DEXAMETHASONE. [Suspect]
     Active Substance: DEXAMETHASONE
     Indication: MENINGITIS FUNGAL
     Dosage: 1 MILLIGRAM DAILY;
     Route: 048
  14. DEXAMETHASONE. [Suspect]
     Active Substance: DEXAMETHASONE
     Dosage: 2 MILLIGRAM DAILY;
     Route: 042
  15. VORICONAZOLE. [Suspect]
     Active Substance: VORICONAZOLE
     Indication: MENINGITIS FUNGAL

REACTIONS (7)
  - Cardiac arrest [Fatal]
  - Tubulointerstitial nephritis [Unknown]
  - Withdrawal hypertension [Recovered/Resolved]
  - Pulmonary embolism [Fatal]
  - Large intestine perforation [Fatal]
  - Hepatotoxicity [Unknown]
  - Gastrointestinal wall thinning [Fatal]
